FAERS Safety Report 20753876 (Version 1)
Quarter: 2022Q2

REPORT INFORMATION
  Report Type: Spontaneous
  Country: US (occurrence: None)
  Receive Date: 20220426
  Receipt Date: 20220426
  Transmission Date: 20220721
  Serious: No
  Sender: FDA-Public Use
  Company Number: US-ROCHE-3028738

PATIENT
  Sex: Female

DRUGS (10)
  1. ESBRIET [Suspect]
     Active Substance: PIRFENIDONE
     Indication: Idiopathic pulmonary fibrosis
     Dosage: TAKE 1 TABLETS 3 TIMES DAILY FOR 1 WEEK AND TAKE 2 TABLETS 3  TIMES DAILY FOR 1 WEEK THEN 3 TABLETS
     Route: 048
  2. PROTONIX [Concomitant]
     Active Substance: PANTOPRAZOLE SODIUM
     Dosage: PAC
  3. PREDNISONE [Concomitant]
     Active Substance: PREDNISONE
  4. CALCIUM [Concomitant]
     Active Substance: CALCIUM
  5. LISINOPRIL [Concomitant]
     Active Substance: LISINOPRIL
  6. LOVASTATIN [Concomitant]
     Active Substance: LOVASTATIN
  7. MELATONIN [Concomitant]
     Active Substance: MELATONIN
  8. METOPROLOL [Concomitant]
     Active Substance: METOPROLOL
  9. PANTOPRAZOLE [Concomitant]
     Active Substance: PANTOPRAZOLE
     Dosage: SOL
  10. VITAMIN D3 [Concomitant]
     Active Substance: CHOLECALCIFEROL

REACTIONS (3)
  - Initial insomnia [Not Recovered/Not Resolved]
  - Paraesthesia [Not Recovered/Not Resolved]
  - Arthritis [Not Recovered/Not Resolved]
